FAERS Safety Report 6491720-6 (Version None)
Quarter: 2009Q4

REPORT INFORMATION
  Report Type: 
  Country: None (occurrence: None)
  Receive Date: 20091208
  Receipt Date: 20091202
  Transmission Date: 20100525
  Serious: Yes (Other)
  Sender: FDA-Public Use
  Company Number: 2009SP039400

PATIENT
  Sex: Female

DRUGS (2)
  1. DESLORATADINE [Suspect]
     Indication: PROPHYLAXIS
     Dosage: 1 DF;QD;PO
     Route: 048
     Dates: start: 20091201
  2. ATARAX [Suspect]
     Indication: PROPHYLAXIS
     Dosage: 1 DF;ONCE;PO
     Route: 048
     Dates: start: 20091201

REACTIONS (3)
  - BLOOD PRESSURE INCREASED [None]
  - HEART RATE INCREASED [None]
  - VOMITING [None]
